FAERS Safety Report 13863301 (Version 1)
Quarter: 2017Q3

REPORT INFORMATION
  Report Type: Spontaneous
  Country: US (occurrence: US)
  Receive Date: 20170814
  Receipt Date: 20170814
  Transmission Date: 20171127
  Serious: Yes (Other)
  Sender: FDA-Public Use
  Company Number: US-ACCORD-056970

PATIENT
  Age: 64 Year
  Sex: Female
  Weight: 90.72 kg

DRUGS (1)
  1. AMITRIPTYLINE ACCORD [Suspect]
     Active Substance: AMITRIPTYLINE
     Indication: NEUROPATHY PERIPHERAL
     Dosage: BROWN TABLET WITH I5
     Route: 048
     Dates: start: 20170727, end: 20170728

REACTIONS (5)
  - Palpitations [Unknown]
  - Sleep apnoea syndrome [Unknown]
  - Off label use [Unknown]
  - Hypoaesthesia [Unknown]
  - Product substitution issue [Unknown]
